FAERS Safety Report 8133515-3 (Version None)
Quarter: 2012Q1

REPORT INFORMATION
  Report Type: 
  Country: None (occurrence: None)
  Receive Date: 20120213
  Receipt Date: 20120210
  Transmission Date: 20120608
  Serious: Yes (Hospitalization, Other)
  Sender: FDA-Public Use
  Company Number: US-BRACCO-007287

PATIENT
  Sex: Female
  Weight: 73 kg

DRUGS (12)
  1. LEVOTHYROXINE SODIUM [Concomitant]
     Route: 048
  2. SAVELLA [Concomitant]
     Route: 048
  3. PROHANCE [Suspect]
     Indication: OSTEOMYELITIS
     Route: 042
     Dates: start: 20111219, end: 20111219
  4. PROHANCE [Suspect]
     Indication: INFECTION
     Route: 042
     Dates: start: 20111219, end: 20111219
  5. FLUOXETINE [Concomitant]
     Route: 048
  6. CALCIUM [Concomitant]
  7. ACETAMINOP. W/BUTALBITAL/CAFF./CODEINE PHOSP. [Concomitant]
     Dosage: PRN EVERY SIX HOURS
     Route: 048
  8. SPIRONOLACTONE [Concomitant]
     Route: 048
  9. VITAMIN D [Concomitant]
  10. PROHANCE [Suspect]
     Indication: NUCLEAR MAGNETIC RESONANCE IMAGING
     Route: 042
     Dates: start: 20111219, end: 20111219
  11. ADVAIR DISKUS 100/50 [Concomitant]
     Dosage: DAILY
  12. BUMEX [Concomitant]
     Route: 048

REACTIONS (3)
  - DIASTOLIC DYSFUNCTION [None]
  - ANAPHYLACTIC SHOCK [None]
  - VISION BLURRED [None]
